FAERS Safety Report 10247338 (Version 1)
Quarter: 2014Q2

REPORT INFORMATION
  Report Type: Spontaneous
  Country: IE (occurrence: IE)
  Receive Date: 20140619
  Receipt Date: 20140619
  Transmission Date: 20141212
  Serious: Yes (Other)
  Sender: FDA-Public Use
  Company Number: IE-ACTAVIS-2014-12967

PATIENT
  Age: 64 Year
  Sex: Male

DRUGS (2)
  1. SPIRONOLACTONE [Suspect]
     Indication: SINGLE FUNCTIONAL KIDNEY
     Dosage: 100 MG, DAILY
     Route: 048
     Dates: end: 20140605
  2. FUROSEMIDE                         /00032602/ [Concomitant]
     Indication: PRODUCT USED FOR UNKNOWN INDICATION
     Dosage: UNKNOWN
     Route: 065

REACTIONS (14)
  - Erectile dysfunction [Unknown]
  - Loss of libido [Unknown]
  - Pain [Unknown]
  - Gynaecomastia [Unknown]
  - Breast tenderness [Unknown]
  - Lethargy [Unknown]
  - Muscular weakness [Unknown]
  - Muscle spasms [Unknown]
  - Influenza like illness [Unknown]
  - Exfoliative rash [Unknown]
  - Faeces pale [Unknown]
  - Alopecia [Unknown]
  - Vision blurred [Unknown]
  - Joint swelling [Unknown]
